FAERS Safety Report 5129388-3 (Version None)
Quarter: 2006Q4

REPORT INFORMATION
  Report Type: 
  Country: None (occurrence: None)
  Receive Date: 20061012
  Receipt Date: 20061004
  Transmission Date: 20070319
  Serious: Yes (Death, Other)
  Sender: FDA-Public Use
  Company Number: GXKR2006BR06298

PATIENT
  Age: 70 Year
  Sex: Female
  Weight: 50 kg

DRUGS (17)
  1. CIPROFLOXACIN HYDROCHLORIDE (NGX) (CIPROFLOXACIN HYDROCHLORIDE) FILM C [Suspect]
     Indication: PNEUMONIA
     Dosage: 500 MG, ORAL
     Route: 048
  2. CIPROFLOXACIN HYDROCHLORIDE(CIPROFLOXACIN HYDROCHLORIDE) [Suspect]
     Indication: DRUG USE FOR UNKNOWN INDICATION
     Dosage: INTRAVENOUS
     Route: 042
  3. AZITHROMYCIN [Suspect]
     Indication: DRUG USE FOR UNKNOWN INDICATION
     Dosage: INTRAVENOUS
     Route: 042
  4. OMEPRAZOLE [Concomitant]
  5. AMLODIPINE [Concomitant]
  6. MONOCORDIL (ISOSORBIDE MONONITRATE) [Concomitant]
  7. CARVEDILOL [Concomitant]
  8. HYDRALAZINE HCL [Concomitant]
  9. TRAMADOL HCL [Concomitant]
  10. AMITRIPTYLINE HCL [Concomitant]
  11. CARBAMAZEPINE [Concomitant]
  12. NOLVAGINA [Concomitant]
  13. FERROUS SULPHATE (FERROUS SULFATE) [Concomitant]
  14. CALCIUM CARBONATE (CALCIUM CARBONATE) [Concomitant]
  15. HALOPERIDOL [Concomitant]
  16. FUROSEMIDE [Concomitant]
  17. SERTRALINE [Concomitant]

REACTIONS (9)
  - ASCITES [None]
  - CARDIAC DISORDER [None]
  - CEREBROVASCULAR ACCIDENT [None]
  - CONDITION AGGRAVATED [None]
  - HEADACHE [None]
  - LIVER DISORDER [None]
  - MALAISE [None]
  - RENAL IMPAIRMENT [None]
  - SEPSIS [None]
